FAERS Safety Report 22342767 (Version 2)
Quarter: 2023Q2

REPORT INFORMATION
  Report Type: Report from Study
  Country: US (occurrence: US)
  Receive Date: 20230519
  Receipt Date: 20230528
  Transmission Date: 20230722
  Serious: Yes (Other)
  Sender: FDA-Public Use
  Company Number: US-drreddys-CLI/USA/23/0164912

PATIENT
  Age: 18 Year
  Sex: Female

DRUGS (2)
  1. ZENATANE [Suspect]
     Active Substance: ISOTRETINOIN
     Indication: Acne
     Dosage: RMA ISSUE DATE: 08 SEPTEMBER 2022 05:00:11 PM,
     Dates: start: 20220908, end: 20230207
  2. ZENATANE [Suspect]
     Active Substance: ISOTRETINOIN
     Dosage: RMA ISSUE DATE: 13 OCTOBER 2022 05:40:25 PM, 17 NOVEMBER 2022 04:34:57 PM, 29 DECEMBER 2022 04:38:57

REACTIONS (3)
  - Exposure during pregnancy [Unknown]
  - Vomiting [Recovered/Resolved]
  - Nausea [Recovered/Resolved]

NARRATIVE: CASE EVENT DATE: 20230227
